FAERS Safety Report 5912080-2 (Version None)
Quarter: 2008Q4

REPORT INFORMATION
  Report Type: 
  Country: None (occurrence: None)
  Receive Date: 20081006
  Receipt Date: 20081006
  Transmission Date: 20090506
  Serious: Yes (Hospitalization)
  Sender: FDA-Public Use
  Company Number: None

PATIENT
  Age: 63 Year
  Sex: Male

DRUGS (10)
  1. DASATANIB [Suspect]
     Indication: CHRONIC MYELOID LEUKAEMIA
     Dosage: 40MG BID PO
     Route: 048
     Dates: start: 20060106, end: 20061030
  2. LASIX [Concomitant]
  3. ZOCOR [Concomitant]
  4. NORVASC [Concomitant]
  5. CAPTOPRIL [Concomitant]
  6. TOPROL-XL [Concomitant]
  7. INSULIN NOVOLOG 70/30 [Concomitant]
  8. DIGOXIN [Concomitant]
  9. OXYCODONE HCL [Concomitant]
  10. LANTUS [Concomitant]

REACTIONS (5)
  - HAEMATOCRIT DECREASED [None]
  - HAEMOGLOBIN DECREASED [None]
  - NAUSEA [None]
  - UPPER GASTROINTESTINAL HAEMORRHAGE [None]
  - VOMITING [None]
